FAERS Safety Report 14113047 (Version 2)
Quarter: 2017Q4

REPORT INFORMATION
  Report Type: Report from Study
  Country: BG (occurrence: BG)
  Receive Date: 20171022
  Receipt Date: 20171107
  Transmission Date: 20180321
  Serious: Yes (Hospitalization, Other)
  Sender: FDA-Public Use
  Company Number: PHHY2017BG153003

PATIENT
  Age: 67 Year
  Sex: Male
  Weight: 60 kg

DRUGS (3)
  1. ZOLEDRONIC ACID [Concomitant]
     Active Substance: ZOLEDRONIC ACID
     Indication: METASTASES TO BONE
     Dosage: 4 MG, QMO
     Route: 042
     Dates: start: 201505
  2. VOTRIENT [Suspect]
     Active Substance: PAZOPANIB HYDROCHLORIDE
     Indication: RENAL CELL CARCINOMA
     Dosage: 800 MG, QD
     Route: 048
     Dates: start: 201505, end: 20160310
  3. VOTRIENT [Suspect]
     Active Substance: PAZOPANIB HYDROCHLORIDE
     Dosage: 800 MG, QD
     Route: 048
     Dates: end: 20170412

REACTIONS (12)
  - Metastases to heart [Unknown]
  - Asthenia [Unknown]
  - Renal cell carcinoma [Not Recovered/Not Resolved]
  - Metastases to lung [Unknown]
  - Metastases to lymph nodes [Unknown]
  - Anaemia [Recovering/Resolving]
  - Hypotension [Unknown]
  - Metastases to bone [Unknown]
  - Pallor [Unknown]
  - Metastases to liver [Unknown]
  - Malignant neoplasm progression [Not Recovered/Not Resolved]
  - Metastases to peritoneum [Unknown]

NARRATIVE: CASE EVENT DATE: 20160310
